FAERS Safety Report 23950093 (Version 1)
Quarter: 2024Q2

REPORT INFORMATION
  Report Type: Spontaneous
  Country: TN (occurrence: TN)
  Receive Date: 20240607
  Receipt Date: 20240607
  Transmission Date: 20240716
  Serious: Yes (Death, Other)
  Sender: FDA-Public Use
  Company Number: TN-PFIZER INC-PV202400074361

PATIENT
  Age: 51 Year
  Sex: Female

DRUGS (5)
  1. DOXORUBICIN HYDROCHLORIDE [Suspect]
     Active Substance: DOXORUBICIN HYDROCHLORIDE
     Indication: Blastic plasmacytoid dendritic cell neoplasia
     Dosage: UNK, CYCLIC (ONE COURSE)
  2. CYCLOPHOSPHAMIDE [Suspect]
     Active Substance: CYCLOPHOSPHAMIDE
     Indication: Blastic plasmacytoid dendritic cell neoplasia
     Dosage: UNK, CYCLIC (ONE COURSE)
  3. VINCRISTINE [Suspect]
     Active Substance: VINCRISTINE
     Indication: Blastic plasmacytoid dendritic cell neoplasia
     Dosage: UNK, CYCLIC (ONE COURSE)
  4. DEXAMETHASONE [Suspect]
     Active Substance: DEXAMETHASONE
     Indication: Blastic plasmacytoid dendritic cell neoplasia
     Dosage: UNK, CYCLIC (ONE COURSE)
  5. METHOTREXATE [Suspect]
     Active Substance: METHOTREXATE
     Indication: Blastic plasmacytoid dendritic cell neoplasia
     Dosage: UNK, CYCLIC (ONE COURSE OF HIGH DOSE)

REACTIONS (2)
  - Febrile neutropenia [Fatal]
  - Septic shock [Fatal]
